FAERS Safety Report 18134756 (Version 1)
Quarter: 2020Q3

REPORT INFORMATION
  Report Type: Spontaneous
  Country: US (occurrence: US)
  Receive Date: 20200810
  Receipt Date: 20200810
  Transmission Date: 20201103
  Serious: Yes (Other)
  Sender: FDA-Public Use
  Company Number: None

PATIENT
  Age: 54 Year
  Sex: Male
  Weight: 78.75 kg

DRUGS (9)
  1. CILOSTAZOL TABLETS, USP 100 MG [Suspect]
     Active Substance: CILOSTAZOL
     Indication: PAIN IN EXTREMITY
     Dosage: ?          QUANTITY:60 TABLET(S);?
     Route: 048
     Dates: start: 20200806, end: 20200807
  2. VITAMIN D [Concomitant]
     Active Substance: VITAMIN D NOS
  3. ATORVASTATIN [Concomitant]
     Active Substance: ATORVASTATIN
  4. LISINOPRIL. [Concomitant]
     Active Substance: LISINOPRIL
  5. AMLODIPINE [Concomitant]
     Active Substance: AMLODIPINE BESYLATE
  6. MG [Concomitant]
     Active Substance: MAGNESIUM
  7. ASPIRIN. [Concomitant]
     Active Substance: ASPIRIN
  8. IBUPROFEN. [Concomitant]
     Active Substance: IBUPROFEN
  9. FENOFIBRATE. [Concomitant]
     Active Substance: FENOFIBRATE

REACTIONS (8)
  - Anxiety [None]
  - Heart rate increased [None]
  - Dizziness [None]
  - Abdominal pain upper [None]
  - Nausea [None]
  - Pain [None]
  - Headache [None]
  - Insomnia [None]

NARRATIVE: CASE EVENT DATE: 20200807
